FAERS Safety Report 5219604-1 (Version None)
Quarter: 2007Q1

REPORT INFORMATION
  Report Type: 
  Country: None (occurrence: None)
  Receive Date: 20070125
  Receipt Date: 20061229
  Transmission Date: 20070707
  Serious: Yes (Other)
  Sender: FDA-Public Use
  Company Number: US-PFIZER INC-2006029519

PATIENT
  Sex: Female
  Weight: 60.8 kg

DRUGS (4)
  1. BEXTRA [Suspect]
     Dates: start: 20040802, end: 20050101
  2. PRILOSEC [Concomitant]
  3. FLEXERIL [Concomitant]
  4. PSYLLIUM [Concomitant]

REACTIONS (2)
  - RASH [None]
  - STEVENS-JOHNSON SYNDROME [None]
